FAERS Safety Report 9882491 (Version 2)
Quarter: 2014Q2

REPORT INFORMATION
  Report Type: Report from Study
  Country: US (occurrence: US)
  Receive Date: 20140207
  Receipt Date: 20140422
  Transmission Date: 20141212
  Serious: Yes (Other)
  Sender: FDA-Public Use
  Company Number: US-B.I. PHARMACEUTICALS,INC./RIDGEFIELD-2014-BI-04779BI

PATIENT
  Age: 78 Year
  Sex: Female

DRUGS (12)
  1. GILOTRIF [Suspect]
     Indication: NON-SMALL CELL LUNG CANCER METASTATIC
     Dosage: 40 MG
     Route: 048
     Dates: start: 20140101
  2. GILOTRIF [Suspect]
     Dosage: 30 MG
     Route: 048
     Dates: start: 20140102, end: 20140414
  3. CARDURA [Concomitant]
     Route: 065
  4. EUCERIN [Concomitant]
     Route: 065
  5. LOPERAMIDE [Concomitant]
     Route: 065
  6. MOBIC [Concomitant]
     Route: 065
  7. MULTIVITAMINS [Concomitant]
     Route: 065
  8. OXYCONTIN [Concomitant]
     Route: 065
  9. PERCOCET [Concomitant]
     Route: 065
  10. PRAMIPEXOLE DIHYDROCHL [Concomitant]
     Route: 065
  11. TART CHERRY [Concomitant]
     Route: 065
  12. TRAMADOL [Concomitant]
     Route: 065

REACTIONS (4)
  - Haemorrhage [Unknown]
  - Onychoclasis [Unknown]
  - Pain [Unknown]
  - Drug ineffective [Unknown]
